FAERS Safety Report 25878596 (Version 1)
Quarter: 2025Q4

REPORT INFORMATION
  Report Type: Spontaneous
  Country: US (occurrence: US)
  Receive Date: 20251003
  Receipt Date: 20251003
  Transmission Date: 20260118
  Serious: Yes (Hospitalization, Other)
  Sender: VERTEX
  Company Number: US-VERTEX PHARMACEUTICALS-2021-008423

PATIENT
  Sex: Male

DRUGS (2)
  1. SYMDEKO [Suspect]
     Active Substance: IVACAFTOR\TEZACAFTOR
     Indication: Cystic fibrosis
     Dosage: 100 MG TEZACAFTOR/150 MG IVACAFTOR AND 150 MG IVACAFTOR
     Route: 048
     Dates: start: 201811
  2. SYMDEKO [Suspect]
     Active Substance: IVACAFTOR\TEZACAFTOR
     Dosage: 100 MG TEZACAFTOR/150 MG IVACAFTOR AND 150 MG IVACAFTOR
     Route: 048
     Dates: start: 20181231

REACTIONS (10)
  - Varices oesophageal [Recovering/Resolving]
  - Thrombosis [Recovering/Resolving]
  - Hepatic fibrosis [Not Recovered/Not Resolved]
  - Splenomegaly [Unknown]
  - Flatulence [Unknown]
  - Ear discomfort [Unknown]
  - Peripheral swelling [Unknown]
  - Constipation [Unknown]
  - Liver function test increased [Unknown]
  - Dizziness [Unknown]

NARRATIVE: CASE EVENT DATE: 20200101
